FAERS Safety Report 10700402 (Version 1)
Quarter: 2015Q1

REPORT INFORMATION
  Report Type: Spontaneous
  Country: US (occurrence: None)
  Receive Date: 20150108
  Receipt Date: 20150108
  Transmission Date: 20150721
  Serious: Yes (Hospitalization, Other)
  Sender: FDA-Public Use
  Company Number: None

PATIENT
  Age: 18 Year
  Sex: Female
  Weight: 63 kg

DRUGS (3)
  1. TAMIFLU [Suspect]
     Active Substance: OSELTAMIVIR PHOSPHATE
     Indication: INFLUENZA VIRUS TEST POSITIVE
     Route: 048
     Dates: start: 20150101, end: 20150103
  2. KETOROLAC [Concomitant]
     Active Substance: KETOROLAC\KETOROLAC TROMETHAMINE
  3. PROMETHAZINE [Concomitant]
     Active Substance: PROMETHAZINE\PROMETHAZINE HYDROCHLORIDE

REACTIONS (16)
  - Neurological decompensation [None]
  - Gait disturbance [None]
  - Somnolence [None]
  - Areflexia [None]
  - Nausea [None]
  - Drooling [None]
  - Throat tightness [None]
  - Vomiting [None]
  - Guillain-Barre syndrome [None]
  - Paraesthesia [None]
  - Asthenia [None]
  - VIIth nerve paralysis [None]
  - Dysarthria [None]
  - Dysphagia [None]
  - Dizziness [None]
  - Hypophagia [None]

NARRATIVE: CASE EVENT DATE: 20150102
